FAERS Safety Report 8170723-X (Version None)
Quarter: 2012Q1

REPORT INFORMATION
  Report Type: 
  Country: None (occurrence: None)
  Receive Date: 20120228
  Receipt Date: 20120213
  Transmission Date: 20120608
  Serious: Yes (Hospitalization)
  Sender: FDA-Public Use
  Company Number: DE-ROCHE-782521

PATIENT
  Sex: Male

DRUGS (7)
  1. LISINOPRIL [Suspect]
     Indication: PRODUCT USED FOR UNKNOWN INDICATION
     Dosage: TOTAL DOSE: 600 MG, INTAKE NOT ASSURED
     Route: 048
     Dates: start: 20110517, end: 20110517
  2. DIGIMERCK MINOR [Suspect]
     Indication: PRODUCT USED FOR UNKNOWN INDICATION
     Dosage: TOTAL DOSE: 2.1 MG, INTAKE NOT ASSURED
     Route: 048
     Dates: start: 20110517, end: 20110517
  3. METOPROLOL TARTRATE AND HYDROCHLOROTHIAZIDE [Suspect]
     Indication: PRODUCT USED FOR UNKNOWN INDICATION
     Dosage: TOTAL DOSE: 950 MG, INTAKE NOT ASSURED.
     Route: 048
     Dates: start: 20110517, end: 20110517
  4. LEVOTHYROXINE SODIUM [Suspect]
     Indication: PRODUCT USED FOR UNKNOWN INDICATION
     Dosage: TOTAL DOSE: 2500 MCG, DRUG INTAKE NOT ASSURED
     Route: 048
     Dates: start: 20110517, end: 20110517
  5. TORSEMIDE [Suspect]
     Indication: PRODUCT USED FOR UNKNOWN INDICATION
     Dosage: TOTAL DOSE: 300 MG, INTAKE NOT ASSURED
     Route: 048
     Dates: start: 20110517, end: 20110517
  6. MARCUMAR [Suspect]
     Indication: PRODUCT USED FOR UNKNOWN INDICATION
     Dosage: TOTAL DOSE: 75 MG, INTAKE NOT ASSURED
     Route: 048
     Dates: start: 20110517, end: 20110517
  7. MIRTAZAPINE [Suspect]
     Indication: PRODUCT USED FOR UNKNOWN INDICATION
     Dosage: TOTAL DOSE: 735 MG, DRUG INTAKE NOT ASSURED
     Route: 048
     Dates: start: 20110517, end: 20110517

REACTIONS (6)
  - HYPOTENSION [None]
  - DELIRIUM [None]
  - INTENTIONAL OVERDOSE [None]
  - SOMNOLENCE [None]
  - BRADYCARDIA [None]
  - TACHYARRHYTHMIA [None]
